FAERS Safety Report 4384205-4 (Version None)
Quarter: 2004Q2

REPORT INFORMATION
  Report Type: 
  Country: None (occurrence: None)
  Receive Date: 20040621
  Receipt Date: 20040615
  Transmission Date: 20050107
  Serious: No
  Sender: FDA-Public Use
  Company Number: TPA2004A00739

PATIENT
  Age: 84 Year
  Sex: Female
  Weight: 61.2356 kg

DRUGS (3)
  1. ACTOS [Suspect]
     Indication: DIABETES MELLITUS INSULIN-DEPENDENT
     Dosage: 15 MG, 1 IN  1 D, PER ORAL
     Route: 048
     Dates: start: 20040614
  2. METOPROLOL (METOPROLOL) [Concomitant]
  3. MAVIK [Concomitant]

REACTIONS (1)
  - MEDICATION ERROR [None]
